FAERS Safety Report 5898184-1 (Version None)
Quarter: 2008Q3

REPORT INFORMATION
  Report Type: 
  Country: None (occurrence: None)
  Receive Date: 20080925
  Receipt Date: 20080916
  Transmission Date: 20090109
  Serious: Yes (Hospitalization)
  Sender: FDA-Public Use
  Company Number: US-ABBOTT-08P-163-0476571-00

PATIENT
  Sex: Female
  Weight: 67.192 kg

DRUGS (8)
  1. HUMIRA [Suspect]
     Indication: RHEUMATOID ARTHRITIS
     Route: 058
     Dates: start: 20030101
  2. ESOMEPRAZOLE MAGNESIUM [Concomitant]
     Indication: GASTRIC DISORDER
     Route: 048
  3. RALOXIFENE HCL [Concomitant]
     Indication: BONE DISORDER
     Route: 048
  4. ZOLEDRONIC ACID [Concomitant]
     Indication: BONE DISORDER
     Route: 042
  5. LEVOTHYROXINE SODIUM [Concomitant]
     Indication: HYPOTHYROIDISM
     Route: 048
  6. ROBAXIN [Concomitant]
     Indication: PAIN
     Route: 048
  7. PROCHLORPERAZINE EDISYLATE [Concomitant]
     Indication: PAIN
     Route: 048
  8. OXYCODONE HCL [Concomitant]
     Indication: PAIN
     Route: 048

REACTIONS (3)
  - ALLERGY TO METALS [None]
  - MEDICAL DEVICE COMPLICATION [None]
  - OSTEOARTHRITIS [None]
